FAERS Safety Report 7219391-1 (Version None)
Quarter: 2011Q1

REPORT INFORMATION
  Report Type: 
  Country: None (occurrence: None)
  Receive Date: 20110111
  Receipt Date: 20110105
  Transmission Date: 20110831
  Serious: No
  Sender: FDA-Public Use
  Company Number: US-PFIZER INC-2010074864

PATIENT
  Sex: Female
  Weight: 49.887 kg

DRUGS (6)
  1. TIKOSYN [Suspect]
     Indication: ATRIAL FIBRILLATION
     Dosage: 0.125 MG, 2X/DAY
     Route: 048
     Dates: start: 20090101
  2. TIKOSYN [Suspect]
     Indication: HEART RATE DECREASED
  3. DRONEDARONE [Suspect]
     Indication: ATRIAL FIBRILLATION
  4. TOPROL-XL [Concomitant]
     Indication: HYPERTENSION
     Dosage: UNK
  5. NORVASC [Concomitant]
     Indication: HYPERTENSION
     Dosage: UNK
  6. WARFARIN [Concomitant]
     Indication: CARDIAC DISORDER
     Dosage: UNK

REACTIONS (6)
  - HEART RATE IRREGULAR [None]
  - HEADACHE [None]
  - NASOPHARYNGITIS [None]
  - INFLUENZA [None]
  - DRUG INEFFECTIVE [None]
  - NASAL CONGESTION [None]
